FAERS Safety Report 15181327 (Version 3)
Quarter: 2018Q4

REPORT INFORMATION
  Report Type: Spontaneous
  Country: US (occurrence: US)
  Receive Date: 20180723
  Receipt Date: 20181203
  Transmission Date: 20190204
  Serious: Yes (Other)
  Sender: FDA-Public Use
  Company Number: US-SA-2018SA199795

PATIENT
  Age: 66 Year
  Sex: Female
  Weight: 108 kg

DRUGS (2)
  1. TAXOTERE [Suspect]
     Active Substance: DOCETAXEL
     Indication: BREAST CANCER FEMALE
     Dosage: 20 MG, Q3W
     Route: 042
     Dates: start: 20100128, end: 20100128
  2. TAXOTERE [Suspect]
     Active Substance: DOCETAXEL
     Dosage: 20 MG, Q3W
     Route: 042
     Dates: start: 20100401, end: 20100401

REACTIONS (5)
  - Emotional distress [Unknown]
  - Alopecia [Not Recovered/Not Resolved]
  - Anxiety [Unknown]
  - Pain [Unknown]
  - Impaired quality of life [Unknown]

NARRATIVE: CASE EVENT DATE: 20100401
